FAERS Safety Report 14272975 (Version 1)
Quarter: 2017Q4

REPORT INFORMATION
  Report Type: Spontaneous
  Country: US (occurrence: US)
  Receive Date: 20171212
  Receipt Date: 20171212
  Transmission Date: 20180321
  Serious: Yes (Death, Other)
  Sender: FDA-Public Use
  Company Number: US-IMPAX LABORATORIES, INC-2017-IPXL-03539

PATIENT
  Age: 87 Year
  Sex: Male
  Weight: 56 kg

DRUGS (4)
  1. RYTARY [Suspect]
     Active Substance: CARBIDOPA\LEVODOPA
     Indication: PARKINSON^S DISEASE
     Dosage: 61.25/245MG, 4 TIMES A DAY (3 CAP AT BREAKFAST, 2 CAP AT LUNCH AND DINNER, 1 CAP AT BEDTIME)
     Route: 048
     Dates: start: 2016, end: 201711
  2. CARBIDOPA-LEVODOPA ODT [Suspect]
     Active Substance: CARBIDOPA\LEVODOPA
     Indication: PARKINSON^S DISEASE
     Dosage: EVERY 2.5 HOUR, UNK
     Route: 065
  3. TAMSULOSIN [Concomitant]
     Active Substance: TAMSULOSIN
     Indication: PROSTATIC DISORDER
     Dosage: 0.4 MG, UNK
     Route: 065
  4. VITAMIN D [Concomitant]
     Active Substance: CHOLECALCIFEROL
     Indication: PRODUCT USED FOR UNKNOWN INDICATION
     Dosage: UNK
     Route: 065

REACTIONS (5)
  - Hip fracture [Unknown]
  - Fall [Unknown]
  - Dysphagia [Unknown]
  - Pneumonia aspiration [Fatal]
  - Drug effect incomplete [Unknown]

NARRATIVE: CASE EVENT DATE: 201705
